FAERS Safety Report 7701572-1 (Version None)
Quarter: 2011Q3

REPORT INFORMATION
  Report Type: 
  Country: None (occurrence: None)
  Receive Date: 20110822
  Receipt Date: 20110816
  Transmission Date: 20111222
  Serious: Yes (Hospitalization, Other)
  Sender: FDA-Public Use
  Company Number: JP-B.I. PHARMACEUTICALS,INC./RIDGEFIELD-2011-BP-18474NB

PATIENT
  Sex: Male
  Weight: 78 kg

DRUGS (4)
  1. LASIX [Concomitant]
     Dosage: 20 MG
     Route: 065
  2. PRADAXA [Suspect]
     Indication: ATRIAL FIBRILLATION
     Dosage: 220 MG
     Route: 048
     Dates: start: 20110630, end: 20110706
  3. DIGOXIN [Concomitant]
     Dosage: 0.25 MG
     Route: 065
     Dates: start: 20110614, end: 20110701
  4. ALDACTONE [Concomitant]
     Dosage: 25 MG
     Route: 065

REACTIONS (3)
  - OESOPHAGEAL OEDEMA [None]
  - CARDIAC FAILURE CHRONIC [None]
  - OESOPHAGEAL ULCER [None]
